FAERS Safety Report 9336729 (Version 1)
Quarter: 2013Q2

REPORT INFORMATION
  Report Type: Spontaneous
  Country: FR (occurrence: FR)
  Receive Date: 20130607
  Receipt Date: 20130607
  Transmission Date: 20140414
  Serious: Yes (Other)
  Sender: FDA-Public Use
  Company Number: FR-ALLERGAN-1307969US

PATIENT
  Age: 40 Year
  Sex: Female

DRUGS (2)
  1. VISTABEL [Suspect]
     Indication: SKIN WRINKLING
     Dosage: UNK
  2. VISTABEL [Suspect]
     Indication: SKIN WRINKLING

REACTIONS (2)
  - Cervix carcinoma [Unknown]
  - Synovitis [Unknown]
